FAERS Safety Report 10423055 (Version 1)
Quarter: 2014Q3

REPORT INFORMATION
  Report Type: Spontaneous
  Country: CH (occurrence: CH)
  Receive Date: 20140902
  Receipt Date: 20140902
  Transmission Date: 20150326
  Serious: Yes (Hospitalization)
  Sender: FDA-Public Use
  Company Number: CH-AMGEN-CHESP2014065380

PATIENT
  Age: 50 Year
  Sex: Male
  Weight: 66 kg

DRUGS (11)
  1. VI-DE 3 [Concomitant]
     Dosage: 20 GTT, QD
     Route: 048
  2. CALCIUM [Concomitant]
     Active Substance: CALCIUM
     Dosage: 250 MG, QD
     Route: 048
  3. CALCIMAGON D3 [Concomitant]
     Active Substance: CALCIUM\CHOLECALCIFEROL
     Dosage: (IDF) 1 PER DAYUNK
     Route: 048
  4. CALCITROL                          /00508501/ [Concomitant]
     Active Substance: CALCIUM CARBONATE\ERGOCALCIFEROL\RETINOL
     Dosage: 0.25 MUG,(3 PER 1 WEEK) UNK
     Route: 048
  5. PROLIA [Suspect]
     Active Substance: DENOSUMAB
     Indication: OSTEOPOROSIS
     Dosage: 60 MG, Q6MO
     Route: 058
     Dates: start: 20120924, end: 20131216
  6. ASPIRIN CARDIO [Concomitant]
     Active Substance: ASPIRIN
     Dosage: 100 MG, QD
     Route: 048
  7. NEBILET [Concomitant]
     Active Substance: NEBIVOLOL
     Dosage: 1.25 MG, QD
     Route: 048
  8. RENAGEL [Concomitant]
     Active Substance: SEVELAMER HYDROCHLORIDE
     Dosage: 800 MG, QD
     Route: 048
  9. SELIPRAN [Concomitant]
     Active Substance: PRAVASTATIN SODIUM
     Dosage: 10 MG, QD
     Route: 048
  10. URBANYL [Concomitant]
     Active Substance: CLOBAZAM
     Dosage: 2.5 MG, QD
     Route: 048
  11. PREDNISON [Suspect]
     Active Substance: PREDNISONE
     Indication: PROPHYLAXIS AGAINST TRANSPLANT REJECTION
     Dosage: 10 MG, QD
     Route: 048

REACTIONS (3)
  - Osteonecrosis [Recovering/Resolving]
  - Ear pain [Recovering/Resolving]
  - Otitis externa bacterial [Recovering/Resolving]

NARRATIVE: CASE EVENT DATE: 201212
